FAERS Safety Report 6283391-9 (Version None)
Quarter: 2009Q3

REPORT INFORMATION
  Report Type: 
  Country: None (occurrence: None)
  Receive Date: 20090724
  Receipt Date: 20090109
  Transmission Date: 20100115
  Serious: No
  Sender: FDA-Public Use
  Company Number: US-AMGEN-KDL327701

PATIENT
  Sex: Male

DRUGS (2)
  1. EPOGEN [Suspect]
     Indication: DIALYSIS
     Dates: start: 20070901
  2. DIANEAL [Concomitant]

REACTIONS (2)
  - BLOOD IRON DECREASED [None]
  - HAEMOGLOBIN DECREASED [None]
